FAERS Safety Report 23724695 (Version 5)
Quarter: 2024Q2

REPORT INFORMATION
  Report Type: Report from Study
  Country: US (occurrence: US)
  Receive Date: 20240409
  Receipt Date: 20240612
  Transmission Date: 20240716
  Serious: Yes (Hospitalization, Other)
  Sender: FDA-Public Use
  Company Number: US-ABBVIE-5710312

PATIENT
  Sex: Female

DRUGS (20)
  1. HUMIRA [Suspect]
     Active Substance: ADALIMUMAB
     Indication: Psoriasis
     Dosage: FORM STRENGTH: 40 MILLIGRAM?CITRATE FREE
     Route: 058
     Dates: start: 20231105
  2. OXYCODONE AND ACETAMINOPHEN [Concomitant]
     Active Substance: ACETAMINOPHEN\OXYCODONE HYDROCHLORIDE
     Indication: Product used for unknown indication
  3. DULOXETINE [Concomitant]
     Active Substance: DULOXETINE
     Indication: Product used for unknown indication
     Route: 065
     Dates: start: 20240323, end: 20240323
  4. MONTELUKAST [Concomitant]
     Active Substance: MONTELUKAST SODIUM
     Indication: Product used for unknown indication
  5. PREDNISONE [Concomitant]
     Active Substance: PREDNISONE
     Indication: Product used for unknown indication
  6. PENTOXIFYLLINE [Concomitant]
     Active Substance: PENTOXIFYLLINE
     Indication: Product used for unknown indication
  7. VITAMIN D2 [Concomitant]
     Active Substance: ERGOCALCIFEROL
     Indication: Product used for unknown indication
  8. TRAZODONE [Concomitant]
     Active Substance: TRAZODONE HYDROCHLORIDE
     Indication: Product used for unknown indication
  9. SERTRALINE [Concomitant]
     Active Substance: SERTRALINE HYDROCHLORIDE
     Indication: Product used for unknown indication
  10. LOSARTAN POTASSIUM JG [Concomitant]
     Indication: Product used for unknown indication
  11. BUPROPION [Concomitant]
     Active Substance: BUPROPION
     Indication: Product used for unknown indication
  12. LORAZEPAM [Concomitant]
     Active Substance: LORAZEPAM
     Indication: Product used for unknown indication
  13. CYCLOBENZAPRINE [Concomitant]
     Active Substance: CYCLOBENZAPRINE
     Indication: Product used for unknown indication
  14. VITAMIN B12 [Concomitant]
     Active Substance: CYANOCOBALAMIN
     Indication: Product used for unknown indication
  15. AMLODIPINE BESYLATE [Suspect]
     Active Substance: AMLODIPINE BESYLATE
     Indication: Product used for unknown indication
     Route: 065
     Dates: start: 20240323, end: 20240323
  16. LISINOPRIL [Suspect]
     Active Substance: LISINOPRIL
     Indication: Product used for unknown indication
     Route: 065
     Dates: start: 20240323, end: 20240323
  17. MEMANTINE [Suspect]
     Active Substance: MEMANTINE
     Indication: Product used for unknown indication
     Route: 065
     Dates: start: 20240323, end: 20240323
  18. LAMOTRIGINE [Suspect]
     Active Substance: LAMOTRIGINE
     Indication: Product used for unknown indication
     Dosage: FORM STRENGTH: 25 MG?2 TABLETS OF 25 MG
     Route: 065
     Dates: start: 20240323, end: 20240323
  19. GABAPENTIN [Suspect]
     Active Substance: GABAPENTIN
     Indication: Product used for unknown indication
     Route: 065
     Dates: start: 20240323, end: 20240323
  20. LEVOTHYROXINE [Concomitant]
     Active Substance: LEVOTHYROXINE\LEVOTHYROXINE SODIUM
     Indication: Product used for unknown indication

REACTIONS (30)
  - Accidental exposure to product [Recovered/Resolved]
  - Weight increased [Not Recovered/Not Resolved]
  - Sleep disorder [Not Recovered/Not Resolved]
  - Dysphonia [Not Recovered/Not Resolved]
  - Psoriasis [Recovering/Resolving]
  - Fibromyalgia [Not Recovered/Not Resolved]
  - Tinnitus [Not Recovered/Not Resolved]
  - Back disorder [Not Recovered/Not Resolved]
  - Agitation [Unknown]
  - Balance disorder [Recovering/Resolving]
  - High frequency ablation [Not Recovered/Not Resolved]
  - Psoriatic arthropathy [Not Recovered/Not Resolved]
  - Blood pressure fluctuation [Recovering/Resolving]
  - Incontinence [Not Recovered/Not Resolved]
  - Fatigue [Recovering/Resolving]
  - Hypertension [Recovered/Resolved]
  - Sluggishness [Unknown]
  - Hypotension [Recovering/Resolving]
  - Disorientation [Recovering/Resolving]
  - Head discomfort [Recovering/Resolving]
  - Blood creatinine abnormal [Unknown]
  - Strabismus [Recovering/Resolving]
  - Feeling abnormal [Recovering/Resolving]
  - Behcet^s syndrome [Unknown]
  - Eyelid disorder [Recovering/Resolving]
  - General physical health deterioration [Not Recovered/Not Resolved]
  - Arthralgia [Not Recovered/Not Resolved]
  - Osteoarthritis [Not Recovered/Not Resolved]
  - Movement disorder [Unknown]
  - Inflammation [Unknown]

NARRATIVE: CASE EVENT DATE: 20240101
